FAERS Safety Report 5345245-1 (Version None)
Quarter: 2007Q2

REPORT INFORMATION
  Report Type: 
  Country: None (occurrence: None)
  Receive Date: 20070605
  Receipt Date: 20070524
  Transmission Date: 20071010
  Serious: Yes (Hospitalization)
  Sender: FDA-Public Use
  Company Number: PHBS2007TR08542

PATIENT
  Sex: Female

DRUGS (2)
  1. SANDOSTATIN LAR [Suspect]
     Indication: NEUROENDOCRINE TUMOUR
     Dosage: Q28D
     Route: 030
     Dates: start: 20010401
  2. SANDOSTATIN LAR [Suspect]
     Dosage: Q21D
     Route: 030

REACTIONS (5)
  - ABDOMINAL PAIN [None]
  - HEPATECTOMY [None]
  - INJECTION SITE SCAR [None]
  - METASTASES TO LIVER [None]
  - MYALGIA [None]
